FAERS Safety Report 24101982 (Version 2)
Quarter: 2025Q1

REPORT INFORMATION
  Report Type: Report from Study
  Country: GB (occurrence: GB)
  Receive Date: 20240717
  Receipt Date: 20250307
  Transmission Date: 20250409
  Serious: Yes (Other)
  Sender: SAMSUNG BIOEPIS
  Company Number: GB-SAMSUNG BIOEPIS-SB-2024-19936

PATIENT
  Age: 72 Year
  Sex: Female

DRUGS (2)
  1. IMRALDI [Suspect]
     Active Substance: ADALIMUMAB
     Indication: Rheumatoid arthritis
     Dosage: 40 MG/0.8 ML;
     Route: 058
     Dates: start: 201907
  2. IMRALDI [Suspect]
     Active Substance: ADALIMUMAB
     Dosage: 40 MG/0.8 ML;
     Route: 058
     Dates: start: 201907

REACTIONS (7)
  - Rheumatoid arthritis [Unknown]
  - Epistaxis [Unknown]
  - Respiratory tract infection viral [Unknown]
  - Injection site haemorrhage [Unknown]
  - Chest pain [Unknown]
  - Stress [Unknown]
  - Off label use [Unknown]
